FAERS Safety Report 19688805 (Version 4)
Quarter: 2024Q4

REPORT INFORMATION
  Report Type: Spontaneous
  Country: US (occurrence: US)
  Receive Date: 20210811
  Receipt Date: 20241022
  Transmission Date: 20250115
  Serious: Yes (Hospitalization, Other)
  Sender: SANOFI AVENTIS
  Company Number: US-SA-SAC20210809001069

PATIENT
  Age: 61 Year
  Sex: Male

DRUGS (3)
  1. DUPIXENT [Suspect]
     Active Substance: DUPILUMAB
     Indication: Asthma
     Dosage: 300 MG, QOW
     Route: 058
     Dates: start: 20210722
  2. DUPIXENT [Suspect]
     Active Substance: DUPILUMAB
     Dosage: 600 MG, 1X
     Route: 058
     Dates: start: 202410, end: 202410
  3. SINGULAIR [Concomitant]
     Active Substance: MONTELUKAST SODIUM
     Dosage: UNK

REACTIONS (8)
  - Hospitalisation [Unknown]
  - Parkinson^s disease [Unknown]
  - Hypoaesthesia [Unknown]
  - Dyskinesia [Unknown]
  - Cluster headache [Unknown]
  - Rash [Unknown]
  - Conjunctivitis [Unknown]
  - Dry eye [Unknown]

NARRATIVE: CASE EVENT DATE: 20241001
